FAERS Safety Report 24546818 (Version 2)
Quarter: 2024Q4

REPORT INFORMATION
  Report Type: Spontaneous
  Country: US (occurrence: US)
  Receive Date: 20241024
  Receipt Date: 20241206
  Transmission Date: 20250115
  Serious: Yes (Other)
  Sender: BLUEPRINT MEDICINES
  Company Number: US-Blueprint Medicines Corporation-5101

PATIENT
  Age: 50 Year
  Sex: Female

DRUGS (2)
  1. AYVAKIT [Suspect]
     Active Substance: AVAPRITINIB
     Indication: Gastrointestinal stromal tumour
     Route: 065
     Dates: start: 20240723
  2. AYVAKIT [Suspect]
     Active Substance: AVAPRITINIB
     Route: 065
     Dates: start: 20240723

REACTIONS (8)
  - Gastric bypass [Unknown]
  - Ageusia [Unknown]
  - Dysgeusia [Unknown]
  - Skin discolouration [Unknown]
  - Hair colour changes [Unknown]
  - Large intestine polyp [Unknown]
  - Weight decreased [Unknown]
  - Eating disorder [Unknown]
